FAERS Safety Report 12869685 (Version 1)
Quarter: 2016Q4

REPORT INFORMATION
  Report Type: Spontaneous
  Country: DK (occurrence: DK)
  Receive Date: 20161021
  Receipt Date: 20161021
  Transmission Date: 20170207
  Serious: Yes (Other)
  Sender: FDA-Public Use
  Company Number: PHHY2016DK141609

PATIENT
  Age: 50 Year
  Sex: Male
  Weight: 85 kg

DRUGS (5)
  1. HJERTEMAGNYL//ACETYLSALICYLIC ACID [Concomitant]
     Indication: THROMBOSIS PROPHYLAXIS
     Route: 048
     Dates: start: 20160304
  2. BRILIQUE [Concomitant]
     Active Substance: TICAGRELOR
     Indication: THROMBOSIS PROPHYLAXIS
     Route: 048
     Dates: start: 20160304
  3. PINEX//PARACETAMOL [Concomitant]
     Indication: MUSCULOSKELETAL PAIN
     Route: 048
  4. CARVEDILOL HEXAL [Suspect]
     Active Substance: CARVEDILOL
     Indication: THROMBOSIS PROPHYLAXIS
     Dosage: 12.5 MG, QD
     Route: 048
     Dates: start: 20160719, end: 20160922
  5. ATORVASTATIN KRKA [Concomitant]
     Active Substance: ATORVASTATIN
     Indication: HYPERCHOLESTEROLAEMIA
     Route: 048
     Dates: start: 20160304

REACTIONS (2)
  - Suicidal ideation [Recovered/Resolved]
  - Depressed mood [Recovered/Resolved]

NARRATIVE: CASE EVENT DATE: 201608
